FAERS Safety Report 15296027 (Version 3)
Quarter: 2018Q3

REPORT INFORMATION
  Report Type: Spontaneous
  Country: HU (occurrence: HU)
  Receive Date: 20180820
  Receipt Date: 20180905
  Transmission Date: 20181010
  Serious: Yes (Other)
  Sender: FDA-Public Use
  Company Number: HU-ROCHE-2170729

PATIENT
  Age: 66 Year
  Sex: Female

DRUGS (3)
  1. ROACTEMRA [Suspect]
     Active Substance: TOCILIZUMAB
     Indication: INTERSTITIAL LUNG DISEASE
  2. ROACTEMRA [Suspect]
     Active Substance: TOCILIZUMAB
     Indication: DERMATOMYOSITIS
  3. ROACTEMRA [Suspect]
     Active Substance: TOCILIZUMAB
     Indication: RHEUMATOID ARTHRITIS
     Route: 058
     Dates: start: 20180226

REACTIONS (5)
  - Fistula [Recovering/Resolving]
  - Fistula [Recovered/Resolved]
  - Staphylococcal infection [Recovering/Resolving]
  - Purulence [Recovering/Resolving]
  - Erysipelas [Recovering/Resolving]

NARRATIVE: CASE EVENT DATE: 20180727
